FAERS Safety Report 18727524 (Version 1)
Quarter: 2021Q1

REPORT INFORMATION
  Report Type: Spontaneous
  Country: TW (occurrence: TW)
  Receive Date: 20210112
  Receipt Date: 20210112
  Transmission Date: 20210419
  Serious: Yes (Other)
  Sender: FDA-Public Use
  Company Number: TW-AMGEN-TWNSP2021003558

PATIENT
  Age: 4 Year
  Sex: Male

DRUGS (7)
  1. BLINCYTO [Suspect]
     Active Substance: BLINATUMOMAB
     Indication: B PRECURSOR TYPE ACUTE LEUKAEMIA
     Dosage: 15 MICROGRAM, QD
     Route: 065
     Dates: start: 20181213, end: 20181215
  2. BLINCYTO [Suspect]
     Active Substance: BLINATUMOMAB
     Dosage: 5 MICROGRAM, QD
     Route: 065
     Dates: start: 20181219, end: 20181226
  3. METHOTREXATE. [Concomitant]
     Active Substance: METHOTREXATE
     Dosage: 5 GRAM PER SQUARE METRE
  4. BLINCYTO [Suspect]
     Active Substance: BLINATUMOMAB
     Dosage: 15 MICROGRAM, QD
     Route: 065
     Dates: start: 20181227, end: 20190115
  5. CYCLOPHOSPHAMIDE. [Concomitant]
     Active Substance: CYCLOPHOSPHAMIDE
  6. ATG [ANTITHYMOCYTE IMMUNOGLOBULIN] [Concomitant]
     Active Substance: LAPINE T-LYMPHOCYTE IMMUNE GLOBULIN
  7. CYCLOSPORINE. [Concomitant]
     Active Substance: CYCLOSPORINE

REACTIONS (4)
  - Device related infection [Recovered/Resolved]
  - Acute graft versus host disease in skin [Unknown]
  - Pneumonia cytomegaloviral [Unknown]
  - Seizure [Unknown]

NARRATIVE: CASE EVENT DATE: 20191215
